FAERS Safety Report 8284972-3 (Version None)
Quarter: 2012Q2

REPORT INFORMATION
  Report Type: 
  Country: None (occurrence: None)
  Receive Date: 20120413
  Receipt Date: 20110819
  Transmission Date: 20120825
  Serious: No
  Sender: FDA-Public Use
  Company Number: US-ASTRAZENECA-2011SE49907

PATIENT
  Age: 78 Year
  Sex: Male
  Weight: 95.3 kg

DRUGS (3)
  1. FLUTICASONE FUROATE [Concomitant]
  2. NEXIUM [Suspect]
     Indication: GASTROINTESTINAL ULCER HAEMORRHAGE
     Route: 048
     Dates: start: 20050101
  3. ACTOS [Concomitant]

REACTIONS (3)
  - INCREASED VISCOSITY OF BRONCHIAL SECRETION [None]
  - INAPPROPRIATE SCHEDULE OF DRUG ADMINISTRATION [None]
  - INCREASED UPPER AIRWAY SECRETION [None]
